FAERS Safety Report 6277967-2 (Version None)
Quarter: 2009Q3

REPORT INFORMATION
  Report Type: 
  Country: None (occurrence: None)
  Receive Date: 20090722
  Receipt Date: 20090710
  Transmission Date: 20100115
  Serious: Yes (Hospitalization, Other)
  Sender: FDA-Public Use
  Company Number: JP-PFIZER INC-2009175996

PATIENT
  Age: 71 Year

DRUGS (2)
  1. SUNITINIB MALATE [Suspect]
     Indication: GASTROINTESTINAL STROMAL TUMOUR
     Dosage: 50 MG, 1X/DAY
     Route: 048
     Dates: start: 20081203, end: 20081214
  2. THYRADIN S [Concomitant]
     Dosage: UNK
     Route: 048
     Dates: start: 20081122

REACTIONS (4)
  - ANAEMIA [None]
  - GASTROINTESTINAL FISTULA [None]
  - PYREXIA [None]
  - WHITE BLOOD CELL COUNT DECREASED [None]
